FAERS Safety Report 13710712 (Version 1)
Quarter: 2017Q3

REPORT INFORMATION
  Report Type: Spontaneous
  Country: US (occurrence: US)
  Receive Date: 20170702
  Receipt Date: 20170702
  Transmission Date: 20171127
  Serious: Yes (Hospitalization, Disabling)
  Sender: FDA-Public Use
  Company Number: None

PATIENT
  Age: 66 Year
  Sex: Male
  Weight: 105.7 kg

DRUGS (3)
  1. CPAP [Concomitant]
     Active Substance: DEVICE
  2. THYROID [Concomitant]
     Active Substance: LEVOTHYROXINE\LIOTHYRONINE
  3. CLONAZEPAM. [Suspect]
     Active Substance: CLONAZEPAM
     Indication: ANXIETY
     Dosage: ?          QUANTITY:1 TABLET(S);OTHER ROUTE:ORAL?
     Route: 048

REACTIONS (2)
  - Cognitive disorder [None]
  - Amnesia [None]

NARRATIVE: CASE EVENT DATE: 20130404
